FAERS Safety Report 25993118 (Version 1)
Quarter: 2025Q4

REPORT INFORMATION
  Report Type: Spontaneous
  Country: EU (occurrence: EU)
  Receive Date: 20251104
  Receipt Date: 20251104
  Transmission Date: 20260117
  Serious: Yes (Hospitalization, Other)
  Sender: ABBVIE
  Company Number: None

PATIENT
  Age: 53 Year
  Sex: Male
  Weight: 92 kg

DRUGS (3)
  1. HUMIRA [Suspect]
     Active Substance: ADALIMUMAB
     Indication: Crohn^s disease
     Dosage: HUMIRA 40 MG. 80 MILLIGRAM AT INITIATION. SOLUTION FOR INJECTION IN PRE-FILLED PEN
     Route: 058
     Dates: start: 2017, end: 2024
  2. IMURAN [Suspect]
     Active Substance: AZATHIOPRINE
     Indication: Crohn^s disease
     Dosage: IMURAN 50 MG
     Route: 048
     Dates: start: 2006, end: 2015
  3. IMURAN [Suspect]
     Active Substance: AZATHIOPRINE
     Indication: Crohn^s disease
     Dosage: IMURAN 50 MG
     Route: 048
     Dates: start: 2016, end: 2024

REACTIONS (3)
  - Splenomegaly [Recovering/Resolving]
  - Hepatosplenic T-cell lymphoma [Recovering/Resolving]
  - Therapeutic product effect decreased [Unknown]

NARRATIVE: CASE EVENT DATE: 20251015
